FAERS Safety Report 16227017 (Version 6)
Quarter: 2022Q1

REPORT INFORMATION
  Report Type: Other
  Country: CA (occurrence: CA)
  Receive Date: 20190423
  Receipt Date: 20220128
  Transmission Date: 20220423
  Serious: Yes (Hospitalization, Other)
  Sender: FDA-Public Use
  Company Number: E2B_01791102

PATIENT
  Age: 52 Year
  Sex: Female

DRUGS (46)
  1. OLANZAPINE [Suspect]
     Active Substance: OLANZAPINE
     Indication: Psychotic disorder
     Dosage: 5 MG, QD
     Route: 048
  2. OLANZAPINE [Suspect]
     Active Substance: OLANZAPINE
     Indication: Musculoskeletal stiffness
     Dosage: 12.5 MG, QD
     Route: 048
  3. ACETAMINOPHEN [Suspect]
     Active Substance: ACETAMINOPHEN
     Indication: Pain in extremity
     Dosage: 650 MG, PRN
     Route: 048
  4. CLONAZEPAM [Suspect]
     Active Substance: CLONAZEPAM
     Indication: Hypomania
     Dosage: 3 MG, QD
     Route: 048
  5. CLONAZEPAM [Suspect]
     Active Substance: CLONAZEPAM
     Dosage: 3 UNK
     Route: 065
  6. DIAZEPAM [Suspect]
     Active Substance: DIAZEPAM
     Indication: Depression
     Dosage: 250 MG, BID
     Route: 048
  7. DIAZEPAM [Suspect]
     Active Substance: DIAZEPAM
     Dosage: 1500 MG, QD
     Route: 048
  8. DIAZEPAM [Suspect]
     Active Substance: DIAZEPAM
     Dosage: 2750 MG, UNK
     Route: 048
  9. DIAZEPAM [Suspect]
     Active Substance: DIAZEPAM
     Dosage: 2750 MG, UNK
     Route: 065
  10. DIAZEPAM [Suspect]
     Active Substance: DIAZEPAM
     Dosage: 250 MG, BID
     Route: 065
  11. DIAZEPAM [Suspect]
     Active Substance: DIAZEPAM
     Dosage: 1500 MG, QD
     Route: 065
  12. QUETIAPINE [Suspect]
     Active Substance: QUETIAPINE
     Indication: Psychotic disorder
     Dosage: 50 MG, QD
     Route: 048
  13. RISPERIDONE [Suspect]
     Active Substance: RISPERIDONE
     Indication: Psychotic disorder
     Dosage: 3 MG, QD
     Route: 048
  14. TRAZODONE [Suspect]
     Active Substance: TRAZODONE HYDROCHLORIDE
     Indication: Depression
     Dosage: 50 MG, QD
     Route: 048
  15. TRAZODONE [Suspect]
     Active Substance: TRAZODONE HYDROCHLORIDE
     Dosage: 50 MILLIGRAM, QD
     Route: 048
  16. DIVALPROEX SODIUM [Suspect]
     Active Substance: DIVALPROEX SODIUM
     Indication: Product used for unknown indication
     Dosage: 2750 MILLIGRAM
     Route: 065
  17. DIVALPROEX SODIUM [Suspect]
     Active Substance: DIVALPROEX SODIUM
     Dosage: 250 MILLIGRAM, BID
     Route: 065
  18. DIVALPROEX SODIUM [Suspect]
     Active Substance: DIVALPROEX SODIUM
     Dosage: 1500 MILLIGRAM, QD
     Route: 065
  19. PROCYCLIDINE [Suspect]
     Active Substance: PROCYCLIDINE
     Indication: Prophylaxis
     Dosage: 2.5 MILLIGRAM, QD
     Route: 048
  20. APTIVUS [Suspect]
     Active Substance: TIPRANAVIR
     Indication: HIV infection
     Dosage: 500 MG, QD
     Route: 048
  21. TEGRETOL [Suspect]
     Active Substance: CARBAMAZEPINE
     Indication: Hypomania
     Dosage: 200 MG, BID
     Route: 048
  22. TIPRANAVIR [Suspect]
     Active Substance: TIPRANAVIR
     Indication: Product used for unknown indication
     Dosage: 500 MILLIGRAM, QD
     Route: 048
  23. LAMIVUDINE [Concomitant]
     Active Substance: LAMIVUDINE
     Indication: Product used for unknown indication
     Dosage: UNK
     Route: 016
  24. ABACAVIR [Concomitant]
     Active Substance: ABACAVIR
     Indication: Product used for unknown indication
     Dosage: UNK
     Route: 065
  25. BENADRYL                           /00000402/ [Concomitant]
     Indication: Product used for unknown indication
     Dosage: UNK
     Route: 065
  26. BISACODYL [Concomitant]
     Active Substance: BISACODYL
     Indication: Product used for unknown indication
     Dosage: UNK
     Route: 065
  27. CALCIUM CARBONATE [Concomitant]
     Active Substance: CALCIUM CARBONATE
     Indication: Product used for unknown indication
     Dosage: UNK
     Route: 065
  28. MINERALS\VITAMINS [Concomitant]
     Active Substance: MINERALS\VITAMINS
     Indication: Product used for unknown indication
     Dosage: UNK
     Route: 065
  29. CHLORAL HYDRATE [Concomitant]
     Active Substance: CHLORAL HYDRATE
     Indication: Product used for unknown indication
     Dosage: UNK
     Route: 065
  30. ENFUVIRTIDE [Concomitant]
     Active Substance: ENFUVIRTIDE
     Indication: Product used for unknown indication
     Dosage: UNK
     Route: 065
  31. IMODIUM [Concomitant]
     Active Substance: LOPERAMIDE HYDROCHLORIDE
     Indication: Product used for unknown indication
     Route: 065
  32. KALETRA [Concomitant]
     Active Substance: LOPINAVIR\RITONAVIR
     Indication: Product used for unknown indication
     Dosage: UNK
     Route: 065
  33. LACTULOSE [Concomitant]
     Active Substance: LACTULOSE
     Indication: Product used for unknown indication
     Dosage: UNK
     Route: 065
  34. LITHIUM [Concomitant]
     Active Substance: LITHIUM
     Indication: Product used for unknown indication
     Dosage: UNK
     Route: 065
  35. NYSTATIN [Concomitant]
     Active Substance: NYSTATIN
     Indication: Product used for unknown indication
     Route: 065
  36. PROCYCLIDINE HYDROCHLORIDE [Concomitant]
     Active Substance: PROCYCLIDINE HYDROCHLORIDE
     Indication: Prophylaxis
     Dosage: 2.5 MG, QD
     Route: 048
  37. PROCYCLIDINE HYDROCHLORIDE [Concomitant]
     Active Substance: PROCYCLIDINE HYDROCHLORIDE
     Indication: Musculoskeletal stiffness
  38. ATOVAQUONE/PROGUANIL TEVA [Concomitant]
     Indication: Product used for unknown indication
     Dosage: UNK
     Route: 065
  39. ATOVAQUONE AND PROGUANIL HYDROCHLORIDE [Concomitant]
     Active Substance: ATOVAQUONE\PROGUANIL HYDROCHLORIDE
     Indication: Product used for unknown indication
     Dosage: UNK
     Route: 065
  40. SERTRALINE [Concomitant]
     Active Substance: SERTRALINE HYDROCHLORIDE
     Indication: Product used for unknown indication
     Dosage: UNK
     Route: 065
  41. ENFUVIRTIDE [Concomitant]
     Active Substance: ENFUVIRTIDE
     Indication: Product used for unknown indication
     Dosage: UNK
     Route: 065
  42. VITAMINS [Concomitant]
     Active Substance: VITAMINS
     Indication: Product used for unknown indication
     Dosage: UNK
     Route: 065
  43. ACETAMINOPHEN [Concomitant]
     Active Substance: ACETAMINOPHEN
     Indication: Pain in extremity
     Dosage: 650 MILLIGRAM
     Route: 048
  44. VITAMINS NOS [Concomitant]
     Active Substance: VITAMINS
     Indication: Product used for unknown indication
     Dosage: UNK
     Route: 065
  45. ACRIVASTINE [Concomitant]
     Active Substance: ACRIVASTINE
     Indication: Product used for unknown indication
     Dosage: UNK
     Route: 065
  46. APTIVUS [Concomitant]
     Active Substance: TIPRANAVIR
     Indication: HIV infection
     Dosage: 650 MILLIGRAM, QD
     Route: 048

REACTIONS (12)
  - Schizophrenia [Unknown]
  - Psychotic disorder [Unknown]
  - Condition aggravated [Unknown]
  - Hepatic enzyme increased [Unknown]
  - Hepatotoxicity [Unknown]
  - Blood bilirubin increased [Unknown]
  - Jaundice cholestatic [Unknown]
  - Cholelithiasis [Unknown]
  - Pneumonia [Unknown]
  - Hypomania [Unknown]
  - Nausea [Unknown]
  - Vomiting [Unknown]
